FAERS Safety Report 11431987 (Version 1)
Quarter: 2015Q3

REPORT INFORMATION
  Report Type: Spontaneous
  Country: US (occurrence: US)
  Receive Date: 20150828
  Receipt Date: 20150828
  Transmission Date: 20151125
  Serious: Yes (Other)
  Sender: FDA-Public Use
  Company Number: US-PFIZER INC-2015287596

PATIENT
  Age: 55 Year
  Sex: Female
  Weight: 79.37 kg

DRUGS (1)
  1. XELJANZ [Suspect]
     Active Substance: TOFACITINIB CITRATE
     Indication: RHEUMATOID ARTHRITIS
     Dosage: 5 MG, 2X/DAY (EVERY Q 12 HRS)
     Route: 048

REACTIONS (3)
  - Cough [Not Recovered/Not Resolved]
  - Liver disorder [Unknown]
  - Thyroid disorder [Recovered/Resolved]

NARRATIVE: CASE EVENT DATE: 201405
